FAERS Safety Report 6651500-5 (Version None)
Quarter: 2010Q1

REPORT INFORMATION
  Report Type: 
  Country: None (occurrence: None)
  Receive Date: 20100325
  Receipt Date: 20100320
  Transmission Date: 20100710
  Serious: Yes (Death)
  Sender: FDA-Public Use
  Company Number: HK-ROCHE-692415

PATIENT
  Age: 43 Year
  Sex: Male

DRUGS (2)
  1. TAMIFLU [Suspect]
     Indication: H1N1 INFLUENZA
     Route: 065
     Dates: start: 20100318, end: 20100319
  2. ANTIBIOTIC NOS [Concomitant]
     Indication: H1N1 INFLUENZA

REACTIONS (1)
  - DRUG INEFFECTIVE [None]
